FAERS Safety Report 4848159-6 (Version None)
Quarter: 2005Q4

REPORT INFORMATION
  Report Type: 
  Country: None (occurrence: None)
  Receive Date: 20051116
  Receipt Date: 20050217
  Transmission Date: 20060501
  Serious: Yes (Other)
  Sender: FDA-Public Use
  Company Number: HQWYE615625FEB05

PATIENT
  Age: 34 Year
  Sex: Male
  Weight: 108.96 kg

DRUGS (5)
  1. ADVIL COLD AND SINUS [Suspect]
     Indication: HEADACHE
     Dosage: 3 TABLET 1X PER 1 DAY, ORAL
     Route: 048
     Dates: start: 20050216, end: 20050216
  2. TRAZODONE HCL [Concomitant]
  3. CLONAZEPAM [Concomitant]
  4. CYMBALTA [Concomitant]
  5. PAXIL [Concomitant]

REACTIONS (1)
  - FEELING ABNORMAL [None]
